FAERS Safety Report 8907743 (Version 1)
Quarter: 2012Q4

REPORT INFORMATION
  Report Type: 
  Country: US (occurrence: US)
  Receive Date: 20121113
  Receipt Date: 20121113
  Transmission Date: 20130627
  Serious: Yes (Life-Threatening, Other)
  Sender: FDA-Public Use
  Company Number: CHPA2012US010124

PATIENT
  Age: 64 Year
  Sex: Female

DRUGS (3)
  1. MAALOX ADV MAXIMUM STRENGTH ANTACID/ANTIGAS [Suspect]
     Indication: GASTROINTESTINAL PAIN
     Dosage: 6 to 9 TSP, QPM
     Route: 048
  2. CLARITIN [Concomitant]
  3. GELUSIL ^PARKE DAVIS^                   /USA/ [Concomitant]
     Dosage: Unk, Unk

REACTIONS (8)
  - Feeling abnormal [Unknown]
  - Drug dependence [Unknown]
  - Gastrointestinal pain [Unknown]
  - Disease recurrence [Unknown]
  - Therapeutic response unexpected [Unknown]
  - Off label use [Unknown]
  - Incorrect drug administration duration [Unknown]
  - Overdose [Unknown]
